FAERS Safety Report 4470715-8 (Version None)
Quarter: 2004Q4

REPORT INFORMATION
  Report Type: 
  Country: None (occurrence: None)
  Receive Date: 20041006
  Receipt Date: 20040927
  Transmission Date: 20050328
  Serious: No
  Sender: FDA-Public Use
  Company Number: 2004UW20278

PATIENT
  Sex: Female

DRUGS (2)
  1. SEROQUEL [Suspect]
     Dosage: 200 MG DAILY PO
     Route: 048
  2. ZOPICLONE [Concomitant]

REACTIONS (3)
  - DEHYDRATION [None]
  - URINARY RETENTION [None]
  - URINARY TRACT INFECTION [None]
